FAERS Safety Report 5662067-2 (Version None)
Quarter: 2008Q1

REPORT INFORMATION
  Report Type: 
  Country: None (occurrence: None)
  Receive Date: 20080211
  Receipt Date: 20071217
  Transmission Date: 20080703
  Serious: Yes (Other)
  Sender: FDA-Public Use
  Company Number: 07-002443

PATIENT
  Age: 51 Year
  Sex: Male
  Weight: 88.9 kg

DRUGS (9)
  1. TACLONEX [Suspect]
     Indication: PSORIASIS
     Dosage: QD, TOPICAL
     Route: 061
     Dates: start: 20071214
  2. ADVICOR [Concomitant]
  3. LOPRESSOR [Concomitant]
  4. LISINOPRIL /00894002/ (LISINOPRIL DIHYDRATE) [Concomitant]
  5. PLAVIX [Concomitant]
  6. ASPIRIN [Concomitant]
  7. XANAX [Concomitant]
  8. GLUCOVANCE /01182201/ (GLIBECLAMIDE, METFORMIN HYDROCHLORIDE) [Concomitant]
  9. NITROGLYCERIN [Concomitant]

REACTIONS (1)
  - BLOOD GLUCOSE INCREASED [None]
